FAERS Safety Report 5450856-9 (Version None)
Quarter: 2007Q3

REPORT INFORMATION
  Report Type: 
  Country: None (occurrence: None)
  Receive Date: 20070913
  Receipt Date: 20070910
  Transmission Date: 20080115
  Serious: Yes (Death, Hospitalization)
  Sender: FDA-Public Use
  Company Number: PHEH2007US11267

PATIENT
  Age: 88 Year
  Sex: Female

DRUGS (14)
  1. TRILEPTAL [Suspect]
     Indication: CONVULSION
  2. STARLIX [Concomitant]
  3. REGLAN [Concomitant]
  4. SYNTHROID [Concomitant]
  5. FUROSEMIDE [Concomitant]
  6. CALCIUM CARBONATE [Concomitant]
  7. TOPROL-XL [Concomitant]
  8. LAMICTAL [Concomitant]
  9. OMEPRAZOLE [Concomitant]
  10. ZYPREXA [Concomitant]
  11. CLONAZEPAM [Concomitant]
  12. LEXAPRO [Concomitant]
  13. MULTIVITAMINS, OTHER COMBINATIONS [Concomitant]
  14. INSULIN [Concomitant]

REACTIONS (7)
  - CEREBROVASCULAR ACCIDENT [None]
  - CONFUSIONAL STATE [None]
  - LOBAR PNEUMONIA [None]
  - NAUSEA [None]
  - PYREXIA [None]
  - RENAL FAILURE ACUTE [None]
  - VOMITING [None]
